FAERS Safety Report 5123533-1 (Version None)
Quarter: 2006Q4

REPORT INFORMATION
  Report Type: 
  Country: None (occurrence: None)
  Receive Date: 20061010
  Receipt Date: 20060930
  Transmission Date: 20070319
  Serious: Yes (Death)
  Sender: FDA-Public Use
  Company Number: PHBS2006CN15586

PATIENT

DRUGS (1)
  1. LOTENSIN [Suspect]

REACTIONS (1)
  - LARYNGEAL OEDEMA [None]
